FAERS Safety Report 10166263 (Version 1)
Quarter: 2014Q2

REPORT INFORMATION
  Report Type: Report from Study
  Country: US (occurrence: US)
  Receive Date: 20140512
  Receipt Date: 20140512
  Transmission Date: 20141212
  Serious: No
  Sender: FDA-Public Use
  Company Number: US-ALEXION-A201401769

PATIENT
  Sex: 0

DRUGS (2)
  1. SOLIRIS [Suspect]
     Indication: HAEMOLYTIC URAEMIC SYNDROME
     Dosage: 1200 MG, Q2W
     Route: 042
     Dates: start: 201309, end: 201402
  2. SOLIRIS [Suspect]
     Dosage: UNK
     Route: 042
     Dates: start: 201404

REACTIONS (2)
  - Nausea [Unknown]
  - Headache [Unknown]
